FAERS Safety Report 7968908-8 (Version None)
Quarter: 2011Q4

REPORT INFORMATION
  Report Type: 
  Country: None (occurrence: None)
  Receive Date: 20111209
  Receipt Date: 20111205
  Transmission Date: 20120403
  Serious: Yes (Other)
  Sender: FDA-Public Use
  Company Number: JP-BAYER-2011-110934

PATIENT
  Age: 64 Year
  Sex: Female

DRUGS (2)
  1. ASPIRIN [Suspect]
     Indication: ANTIPHOSPHOLIPID SYNDROME
  2. ASPIRIN [Suspect]
     Indication: CARDIOMEGALY
     Dosage: UNK
     Route: 048
     Dates: start: 20010101

REACTIONS (1)
  - ANTIPHOSPHOLIPID SYNDROME [None]
